FAERS Safety Report 16974280 (Version 1)
Quarter: 2019Q4

REPORT INFORMATION
  Report Type: Spontaneous
  Country: CN (occurrence: CN)
  Receive Date: 20191030
  Receipt Date: 20191030
  Transmission Date: 20200122
  Serious: Yes (Other)
  Sender: FDA-Public Use
  Company Number: CN-PFIZER INC-2019468742

PATIENT
  Age: 66 Year
  Sex: Male
  Weight: 90 kg

DRUGS (1)
  1. MEPEM [Suspect]
     Active Substance: MEROPENEM
     Indication: CENTRAL NERVOUS SYSTEM INFECTION
     Dosage: 1 G, 3X/DAY
     Route: 041
     Dates: start: 20190903, end: 20191010

REACTIONS (2)
  - White blood cell count decreased [Recovering/Resolving]
  - Bone marrow failure [Recovering/Resolving]

NARRATIVE: CASE EVENT DATE: 20190909
